FAERS Safety Report 23210786 (Version 1)
Quarter: 2023Q4

REPORT INFORMATION
  Report Type: Spontaneous
  Country: CN (occurrence: CN)
  Receive Date: 20231121
  Receipt Date: 20231121
  Transmission Date: 20240110
  Serious: Yes (Life-Threatening)
  Sender: FDA-Public Use
  Company Number: CN-BAYER-2023A166447

PATIENT
  Age: 56 Year
  Sex: Female

DRUGS (1)
  1. ULTRAVIST [Suspect]
     Active Substance: IOPROMIDE
     Indication: Computerised tomogram heart
     Dosage: 65 ML, ONCE
     Route: 042
     Dates: start: 20231115, end: 20231115

REACTIONS (4)
  - Loss of consciousness [Recovering/Resolving]
  - Unresponsive to stimuli [Recovered/Resolved]
  - Foaming at mouth [None]
  - Blood pressure diastolic decreased [None]

NARRATIVE: CASE EVENT DATE: 20231115
